FAERS Safety Report 18567758 (Version 2)
Quarter: 2021Q1

REPORT INFORMATION
  Report Type: Spontaneous
  Country: US (occurrence: US)
  Receive Date: 20201202
  Receipt Date: 20210310
  Transmission Date: 20210419
  Serious: Yes (Disabling, Other)
  Sender: FDA-Public Use
  Company Number: US-SA-2020SA339679

PATIENT
  Age: 47 Year
  Sex: Female

DRUGS (1)
  1. GOLD BOND ORIGINAL STRENGTH POWDER [Suspect]
     Active Substance: MENTHOL\ZINC OXIDE
     Dosage: UNK

REACTIONS (5)
  - Loss of personal independence in daily activities [Unknown]
  - Deformity [Unknown]
  - Pain [Unknown]
  - Epithelioid mesothelioma [Unknown]
  - Anxiety [Unknown]

NARRATIVE: CASE EVENT DATE: 20200902
